FAERS Safety Report 13618915 (Version 4)
Quarter: 2018Q2

REPORT INFORMATION
  Report Type: Report from Study
  Country: US (occurrence: US)
  Receive Date: 20170606
  Receipt Date: 20180511
  Transmission Date: 20180711
  Serious: Yes (Hospitalization, Other)
  Sender: FDA-Public Use
  Company Number: US-BAXALTA-2017BLT005265

PATIENT
  Age: 10 Year
  Sex: Female
  Weight: 35.9 kg

DRUGS (27)
  1. PEGASPARGASE [Suspect]
     Active Substance: PEGASPARGASE
     Dosage: 3000 MG, ONCE
     Route: 042
     Dates: start: 20170117
  2. RUXOLITINIB [Suspect]
     Active Substance: RUXOLITINIB
     Dosage: 50 MG, 2X/DAY:BID
     Route: 048
     Dates: start: 20170913
  3. VINCRISTINE [Suspect]
     Active Substance: VINCRISTINE
     Indication: ACUTE LYMPHOCYTIC LEUKAEMIA
     Dosage: 1.8 MG, ONCE
     Route: 042
     Dates: start: 20170424
  4. DEXAMETHASONE. [Suspect]
     Active Substance: DEXAMETHASONE
     Indication: ACUTE LYMPHOCYTIC LEUKAEMIA
     Dosage: 6.5 MG, 2X/DAY:BID
     Route: 048
     Dates: start: 20170823
  5. METHOTREXATE. [Suspect]
     Active Substance: METHOTREXATE
     Indication: ACUTE LYMPHOCYTIC LEUKAEMIA
     Dosage: 15 MG, UNK
     Route: 037
     Dates: start: 20170123, end: 20170313
  6. METHOTREXATE. [Suspect]
     Active Substance: METHOTREXATE
     Dosage: 15 MG, ONE DOSE
     Route: 037
     Dates: start: 20170808
  7. VINCRISTINE [Suspect]
     Active Substance: VINCRISTINE
     Dosage: 1.8 MG, ONCE
     Route: 042
     Dates: start: 20170220
  8. MERCAPTOPURINE. [Suspect]
     Active Substance: MERCAPTOPURINE
     Dosage: 50 MG, (SATURDAY - SUNDAY)
     Route: 048
     Dates: start: 201704
  9. METHOTREXATE. [Suspect]
     Active Substance: METHOTREXATE
     Dosage: 15 MG, SINGLE; INTRATHECAL
     Route: 037
     Dates: start: 20170123
  10. METHOTREXATE. [Suspect]
     Active Substance: METHOTREXATE
     Dosage: 15 MG, SINGLE; INTRATHECAL
     Route: 037
     Dates: start: 20170331
  11. BACTRIM [Concomitant]
     Active Substance: SULFAMETHOXAZOLE\TRIMETHOPRIM
     Indication: PRODUCT USED FOR UNKNOWN INDICATION
  12. VINCRISTINE [Suspect]
     Active Substance: VINCRISTINE
     Dosage: 1.9 MG, ONCE
     Route: 042
     Dates: start: 20170823
  13. CYTARABINE. [Suspect]
     Active Substance: CYTARABINE
     Dosage: 92 MG, 1X A DAY
     Route: 042
     Dates: start: 20170410
  14. METHOTREXATE. [Suspect]
     Active Substance: METHOTREXATE
     Dosage: 15 MG, UNK
     Route: 037
     Dates: start: 20170123, end: 20170808
  15. CAFFEINE CITRATE. [Concomitant]
     Active Substance: CAFFEINE CITRATE
     Indication: PRODUCT USED FOR UNKNOWN INDICATION
  16. CAFFEINE. [Concomitant]
     Active Substance: CAFFEINE
     Indication: PRODUCT USED FOR UNKNOWN INDICATION
  17. RUXOLITINIB [Suspect]
     Active Substance: RUXOLITINIB
     Dosage: 25 MG, 2X A DAY
     Route: 048
     Dates: start: 20170220
  18. CYTARABINE. [Suspect]
     Active Substance: CYTARABINE
     Indication: ACUTE LYMPHOCYTIC LEUKAEMIA
     Dosage: 92 MG, 1X A DAY
     Route: 042
     Dates: start: 20170412
  19. ONDANSETRON [Concomitant]
     Active Substance: ONDANSETRON
     Indication: PRODUCT USED FOR UNKNOWN INDICATION
  20. PEGASPARGASE [Suspect]
     Active Substance: PEGASPARGASE
     Indication: ACUTE LYMPHOCYTIC LEUKAEMIA
     Dosage: 3000 MG, ONCE
     Route: 042
     Dates: start: 20170417, end: 20170417
  21. PEGASPARGASE [Suspect]
     Active Substance: PEGASPARGASE
     Dosage: 3150 IU, ONE DOSE
     Route: 042
     Dates: start: 20170811, end: 20170811
  22. RUXOLITINIB [Suspect]
     Active Substance: RUXOLITINIB
     Indication: ACUTE LYMPHOCYTIC LEUKAEMIA
     Dosage: 25 MG, 2X A DAY
     Route: 048
     Dates: start: 20170416
  23. RUXOLITINIB [Suspect]
     Active Substance: RUXOLITINIB
     Dosage: 25 MG, 2X A DAY
     Route: 048
     Dates: start: 20170815, end: 20170828
  24. DOXORUBICIN [Suspect]
     Active Substance: DOXORUBICIN
     Indication: ACUTE LYMPHOCYTIC LEUKAEMIA
     Dosage: 32 MG, ONE DOSE
     Route: 042
     Dates: start: 20170823
  25. METHOTREXATE. [Suspect]
     Active Substance: METHOTREXATE
     Dosage: 5960 MG, ONE DOSE
     Route: 042
     Dates: start: 20170713, end: 20170714
  26. CYTARABINE. [Suspect]
     Active Substance: CYTARABINE
     Dosage: 92 MG, 1X A DAY
     Route: 042
     Dates: start: 20170113
  27. MERCAPTOPURINE. [Suspect]
     Active Substance: MERCAPTOPURINE
     Indication: ACUTE LYMPHOCYTIC LEUKAEMIA
     Dosage: 25 MG, (MONDAY - FRIDAY)
     Route: 048
     Dates: start: 20170424

REACTIONS (2)
  - Febrile neutropenia [Recovered/Resolved]
  - Febrile neutropenia [Recovered/Resolved]

NARRATIVE: CASE EVENT DATE: 20170426
